FAERS Safety Report 4761582-3 (Version None)
Quarter: 2005Q3

REPORT INFORMATION
  Report Type: 
  Country: None (occurrence: None)
  Receive Date: 20050906
  Receipt Date: 20050408
  Transmission Date: 20060218
  Serious: Yes (Other)
  Sender: FDA-Public Use
  Company Number: PHEH2005US04144

PATIENT
  Age: 27 Year
  Sex: Female
  Weight: 72 kg

DRUGS (3)
  1. ZELNORM [Suspect]
     Indication: IRRITABLE BOWEL SYNDROME
     Dosage: 6 MG, BID
     Dates: start: 20020101, end: 20040501
  2. PRENATAL VITAMINS [Concomitant]
  3. CEPHALEXIN [Concomitant]
     Dosage: 500 UNK, TID
     Route: 048
     Dates: start: 20040723

REACTIONS (3)
  - DRUG EXPOSURE DURING PREGNANCY [None]
  - PREGNANCY INDUCED HYPERTENSION [None]
  - PREMATURE LABOUR [None]
